FAERS Safety Report 19984886 (Version 1)
Quarter: 2021Q4

REPORT INFORMATION
  Report Type: Spontaneous
  Country: US (occurrence: US)
  Receive Date: 20211022
  Receipt Date: 20211022
  Transmission Date: 20220304
  Serious: Yes (Hospitalization)
  Sender: FDA-Public Use
  Company Number: US-MYLANLABS-2021M1074297

PATIENT
  Age: 38 Year
  Sex: Female

DRUGS (5)
  1. DOXYCYCLINE [Suspect]
     Active Substance: DOXYCYCLINE
     Indication: COVID-19
     Dosage: UNK
     Route: 065
     Dates: start: 2020
  2. APIXABAN [Suspect]
     Active Substance: APIXABAN
     Indication: Thrombosis prophylaxis
     Dosage: UNK
     Route: 065
     Dates: start: 2020
  3. HYDROXYCHLOROQUINE DIPHOSPHATE [Suspect]
     Active Substance: HYDROXYCHLOROQUINE DIPHOSPHATE
     Indication: COVID-19
     Dosage: UNK
     Route: 065
  4. METHYLPREDNISOLONE [Suspect]
     Active Substance: METHYLPREDNISOLONE
     Indication: COVID-19
     Dosage: UNK
     Route: 065
     Dates: start: 2020
  5. CEFTRIAXONE [Suspect]
     Active Substance: CEFTRIAXONE
     Indication: COVID-19
     Dosage: UNK
     Route: 065
     Dates: start: 2020

REACTIONS (3)
  - Drug ineffective for unapproved indication [Unknown]
  - Off label use [Unknown]
  - Drug ineffective [Unknown]

NARRATIVE: CASE EVENT DATE: 20200101
